FAERS Safety Report 8467016-X (Version None)
Quarter: 2012Q2

REPORT INFORMATION
  Report Type: 
  Country: None (occurrence: None)
  Receive Date: 20120619
  Receipt Date: 20120604
  Transmission Date: 20120825
  Serious: Yes (Hospitalization)
  Sender: FDA-Public Use
  Company Number: 2012-002089

PATIENT
  Sex: Female

DRUGS (1)
  1. ASACOL [Suspect]
     Indication: COLITIS
     Dosage: 4800 MG, QD, ORAL
     Route: 048

REACTIONS (2)
  - DIARRHOEA [None]
  - CARDIAC FAILURE [None]
